FAERS Safety Report 17658617 (Version 2)
Quarter: 2020Q2

REPORT INFORMATION
  Report Type: Report from Study
  Country: US (occurrence: US)
  Receive Date: 20200412
  Receipt Date: 20200424
  Transmission Date: 20200713
  Serious: No
  Sender: FDA-Public Use
  Company Number: US-SA-2020SA092461

PATIENT
  Age: 54 Year
  Sex: Female

DRUGS (1)
  1. DUPILUMAB [Suspect]
     Active Substance: DUPILUMAB
     Indication: NASAL POLYPS
     Dosage: 300 MG, QOW
     Route: 058
     Dates: start: 202002

REACTIONS (3)
  - Rhinorrhoea [Unknown]
  - Injection site pain [Unknown]
  - Throat clearing [Unknown]

NARRATIVE: CASE EVENT DATE: 2020
